FAERS Safety Report 6551409-1 (Version None)
Quarter: 2010Q1

REPORT INFORMATION
  Report Type: 
  Country: None (occurrence: None)
  Receive Date: 20100120
  Receipt Date: 20100108
  Transmission Date: 20100710
  Serious: No
  Sender: FDA-Public Use
  Company Number: 20107962

PATIENT
  Age: 55 Year
  Sex: Male

DRUGS (2)
  1. LIORESAL [Suspect]
     Indication: MUSCLE SPASTICITY
     Dosage: MCG, DAILY, INTRATHECAL
     Route: 037
  2. BUPIVICAINE [Concomitant]

REACTIONS (5)
  - IRRITABILITY [None]
  - MOOD ALTERED [None]
  - MUSCLE SPASTICITY [None]
  - PRURITUS [None]
  - UNDERDOSE [None]
